FAERS Safety Report 15018368 (Version 2)
Quarter: 2018Q3

REPORT INFORMATION
  Report Type: Spontaneous
  Country: AU (occurrence: AU)
  Receive Date: 20180615
  Receipt Date: 20180701
  Transmission Date: 20181010
  Serious: Yes (Other)
  Sender: FDA-Public Use
  Company Number: AU-MYLANLABS-2018M1039578

PATIENT
  Sex: Male

DRUGS (1)
  1. DIAFORMIN XR [Suspect]
     Active Substance: METFORMIN HYDROCHLORIDE
     Indication: BLOOD GLUCOSE ABNORMAL
     Dosage: 1 DF, BID

REACTIONS (2)
  - No adverse event [Unknown]
  - Drug ineffective [Unknown]
